FAERS Safety Report 22059115 (Version 1)
Quarter: 2023Q1

REPORT INFORMATION
  Report Type: Report from Study
  Country: US (occurrence: US)
  Receive Date: 20230303
  Receipt Date: 20230303
  Transmission Date: 20230418
  Serious: Yes (Other)
  Sender: FDA-Public Use
  Company Number: US-002147023-NVSC2023US043448

PATIENT
  Sex: Female

DRUGS (1)
  1. COSENTYX [Suspect]
     Active Substance: SECUKINUMAB
     Indication: Psoriatic arthropathy
     Dosage: 150 MG, QMO (Q 4 WEEKS)
     Route: 058

REACTIONS (4)
  - Presenile dementia [Unknown]
  - Seizure [Unknown]
  - Nervous system disorder [Unknown]
  - Dysstasia [Unknown]
